FAERS Safety Report 8557286-1 (Version None)
Quarter: 2012Q3

REPORT INFORMATION
  Report Type: 
  Country: None (occurrence: None)
  Receive Date: 20120801
  Receipt Date: 20120720
  Transmission Date: 20120928
  Serious: Yes (Disabling, Other)
  Sender: FDA-Public Use
  Company Number: US-009507513-1205USA02889

PATIENT

DRUGS (3)
  1. CALCIUM (UNSPECIFIED) [Concomitant]
     Dosage: UNK, BID
     Dates: start: 19970101
  2. FOSAMAX PLUS D [Suspect]
     Indication: OSTEOPOROSIS
     Dosage: 70 MG, QW
     Route: 048
  3. FOSAMAX [Suspect]
     Indication: OSTEOPOROSIS
     Dosage: 70 MG, QW
     Route: 048

REACTIONS (11)
  - DEPRESSION [None]
  - FEMUR FRACTURE [None]
  - STRESS FRACTURE [None]
  - OSTEOPOROSIS [None]
  - IMPAIRED HEALING [None]
  - LOW TURNOVER OSTEOPATHY [None]
  - ANXIETY [None]
  - FOOT FRACTURE [None]
  - CALCIUM DEFICIENCY [None]
  - KIDNEY INFECTION [None]
  - ARTHROPATHY [None]
